FAERS Safety Report 11121525 (Version 2)
Quarter: 2015Q2

REPORT INFORMATION
  Report Type: Spontaneous
  Country: IT (occurrence: IT)
  Receive Date: 20150519
  Receipt Date: 20150526
  Transmission Date: 20150821
  Serious: Yes (Hospitalization, Other)
  Sender: FDA-Public Use
  Company Number: IT-SUN PHARMACEUTICAL INDUSTRIES LTD-2015RR-97373

PATIENT
  Age: 29 Year
  Sex: Female

DRUGS (8)
  1. ARIPIPRAZOLE. [Concomitant]
     Active Substance: ARIPIPRAZOLE
     Indication: SCHIZOAFFECTIVE DISORDER
     Dosage: 30 MG, DAILY
     Route: 065
  2. CLOZAPINE. [Interacting]
     Active Substance: CLOZAPINE
     Indication: PSYCHOTIC DISORDER
     Dosage: 225 MG, DAILY GRADUALLY INCREASED WITHIN 16 DAYS FROM 25 MG/DAY
     Route: 048
  3. MICONAZOLE [Interacting]
     Active Substance: MICONAZOLE
     Indication: ORAL CANDIDIASIS
     Dosage: 20 MG, BID
     Route: 048
  4. ETHINYL ESTRADIOL/ DROSPIRENONE [Interacting]
     Active Substance: DROSPIRENONE\ETHINYL ESTRADIOL
     Indication: ORAL CONTRACEPTION
     Dosage: 0.03 MG/3 MG DAILY
     Route: 048
  5. OLANZAPINE. [Concomitant]
     Active Substance: OLANZAPINE
     Indication: SCHIZOAFFECTIVE DISORDER
     Dosage: 20 MG, DAILY
     Route: 048
  6. HALOPERIDOL. [Concomitant]
     Active Substance: HALOPERIDOL
     Indication: SCHIZOAFFECTIVE DISORDER
     Dosage: 9 MG, DAILY
     Route: 048
  7. FLUCONAZOLE. [Interacting]
     Active Substance: FLUCONAZOLE
     Indication: ORAL CANDIDIASIS
     Dosage: 100 MG, DAILY
     Route: 048
  8. CLOZAPINE. [Suspect]
     Active Substance: CLOZAPINE
     Indication: PSYCHOTIC DISORDER
     Dosage: 25 MG, DAILY
     Route: 048

REACTIONS (11)
  - Drug level increased [Recovered/Resolved]
  - Pericardial effusion [Recovered/Resolved]
  - Tachycardia [Recovered/Resolved]
  - Toxicity to various agents [Recovered/Resolved]
  - Nausea [Recovered/Resolved]
  - Drug interaction [Recovered/Resolved]
  - Pericarditis [Recovered/Resolved]
  - Electrocardiogram T wave inversion [Recovered/Resolved]
  - Vomiting [Recovered/Resolved]
  - Eosinophilia [Recovered/Resolved]
  - Electrocardiogram ST segment depression [Recovered/Resolved]
